FAERS Safety Report 18141858 (Version 4)
Quarter: 2020Q4

REPORT INFORMATION
  Report Type: Spontaneous
  Country: US (occurrence: US)
  Receive Date: 20200812
  Receipt Date: 20201019
  Transmission Date: 20210113
  Serious: Yes (Other)
  Sender: FDA-Public Use
  Company Number: US-PFIZER INC-2019512501

PATIENT
  Age: 82 Year
  Sex: Male

DRUGS (1)
  1. CELEBREX [Suspect]
     Active Substance: CELECOXIB
     Indication: PAIN
     Dosage: 200 MG, AS NEEDED (TAKE 2 CAPSULES (200 MG) BY MOUTH DAILY AS NEEDED)
     Route: 048

REACTIONS (4)
  - Macular degeneration [Unknown]
  - Frustration tolerance decreased [Unknown]
  - Arthritis [Unknown]
  - Blindness [Unknown]
